FAERS Safety Report 10440717 (Version 1)
Quarter: 2014Q3

REPORT INFORMATION
  Report Type: Spontaneous
  Country: US (occurrence: None)
  Receive Date: 20140908
  Receipt Date: 20140908
  Transmission Date: 20150326
  Serious: No
  Sender: FDA-Public Use
  Company Number: None

PATIENT
  Age: 32 Year
  Sex: Female
  Weight: 93 kg

DRUGS (1)
  1. BUPIVACAINE [Suspect]
     Active Substance: BUPIVACAINE
     Indication: SPINAL ANAESTHESIA
     Dosage: 1 INJECTION, ONE TIME, SPINAL
     Dates: start: 20140829, end: 20140829

REACTIONS (2)
  - Paraesthesia [None]
  - Drug effect decreased [None]

NARRATIVE: CASE EVENT DATE: 20140829
